FAERS Safety Report 7906545-1 (Version None)
Quarter: 2011Q4

REPORT INFORMATION
  Report Type: 
  Country: None (occurrence: None)
  Receive Date: 20111110
  Receipt Date: 20111108
  Transmission Date: 20120403
  Serious: Yes (Other)
  Sender: FDA-Public Use
  Company Number: US-PFIZER INC-2011259202

PATIENT
  Sex: Male
  Weight: 104 kg

DRUGS (20)
  1. MULTI-VITAMINS [Concomitant]
     Indication: MALABSORPTION
     Dosage: TWO TABLETS, UNKNOWN DOSE,DAILY, IN THE MORNING
     Route: 048
  2. CALCIUM [Concomitant]
     Indication: MALABSORPTION
     Dosage: 1200 MG, DAILY
  3. JANUVIA [Concomitant]
     Indication: TYPE 2 DIABETES MELLITUS
     Dosage: 50 MG, DAILY, IN THE MORNING
  4. CETIRIZINE HYDROCHLORIDE [Concomitant]
     Indication: HYPERSENSITIVITY
     Dosage: 10 MG, DAILY, AT NIGHT
  5. LEVOTHYROXINE [Concomitant]
     Indication: EMPTY SELLA SYNDROME
  6. LIPITOR [Suspect]
     Indication: BLOOD CHOLESTEROL INCREASED
     Dosage: 10 MG, 1X/DAY, AT NIGHT
     Route: 048
  7. GENOTROPIN [Concomitant]
     Indication: EMPTY SELLA SYNDROME
     Dosage: 5 MG, DAILY, IN THE MORNING
     Route: 058
  8. ACETYLSALICYLIC ACID [Concomitant]
     Indication: PROPHYLAXIS
     Dosage: 81 MG, DAILY, IN THE MORNING
  9. LOSARTAN [Concomitant]
     Indication: PROPHYLAXIS
     Dosage: UNK, DAILY
  10. LIPITOR [Suspect]
     Indication: PROPHYLAXIS
     Dosage: 10 MG, DAILY
  11. OMEPRAZOLE [Concomitant]
     Indication: GASTROOESOPHAGEAL REFLUX DISEASE
     Dosage: 20 MG, 2X/DAY
  12. CLONAZEPAM [Concomitant]
     Indication: MUSCLE SPASMS
     Dosage: 0.5 MG, DAILY, AT NIGHT
  13. LEVOTHYROXINE [Concomitant]
     Indication: HYPOTHYROIDISM
     Dosage: 175 UG, DAILY, IN THE MORNING
  14. GABAPENTIN [Concomitant]
     Indication: NEUROPATHY PERIPHERAL
     Dosage: 300 MG, DAILY, AT NIGHT
  15. LIPITOR [Suspect]
     Dosage: UNK, DAILY
     Route: 048
  16. VITAMIN D [Concomitant]
     Indication: MALABSORPTION
     Dosage: 1000 IU, DAILY
  17. CETIRIZINE HYDROCHLORIDE [Concomitant]
     Indication: SKIN DISORDER
  18. CLONAZEPAM [Concomitant]
     Indication: CONVULSION
  19. IRON [Concomitant]
     Indication: ANAEMIA
     Dosage: 65 MG, DAILY, AT NIGHT
  20. TESTOSTERONE [Concomitant]
     Indication: EMPTY SELLA SYNDROME
     Dosage: 200 MG, EVERY TWO WEEKS

REACTIONS (3)
  - GLOMERULAR FILTRATION RATE DECREASED [None]
  - BLOOD CREATININE INCREASED [None]
  - GLYCOSYLATED HAEMOGLOBIN INCREASED [None]
